FAERS Safety Report 8600561-2 (Version None)
Quarter: 2012Q3

REPORT INFORMATION
  Report Type: 
  Country: None (occurrence: None)
  Receive Date: 20120808
  Receipt Date: 20120808
  Transmission Date: 20120928
  Serious: Yes (Life-Threatening)
  Sender: FDA-Public Use
  Company Number: None

PATIENT
  Age: 73 Year
  Sex: Male
  Weight: 92.9874 kg

DRUGS (1)
  1. DOXAZOSIN MESYLATE [Suspect]
     Indication: BLOOD PRESSURE
     Dosage: 2 MG X 1 NIGHT ORAL
     Route: 048

REACTIONS (4)
  - MALAISE [None]
  - DRUG EFFECT PROLONGED [None]
  - HEART RATE IRREGULAR [None]
  - HEART RATE INCREASED [None]
